FAERS Safety Report 19856927 (Version 3)
Quarter: 2021Q4

REPORT INFORMATION
  Report Type: Report from Study
  Country: US (occurrence: US)
  Receive Date: 20210920
  Receipt Date: 20211123
  Transmission Date: 20220303
  Serious: Yes (Hospitalization, Other)
  Sender: FDA-Public Use
  Company Number: NVSC2019US086995

PATIENT
  Age: 11 Week
  Sex: Female
  Weight: 10.8 kg

DRUGS (23)
  1. ZOLGENSMA [Suspect]
     Active Substance: ONASEMNOGENE ABEPARVOVEC-XIOI
     Indication: Spinal muscular atrophy
     Dosage: 275 ML, ONCE/SINGLE
     Route: 042
     Dates: start: 20190829, end: 20190829
  2. PREDNISOLONE [Concomitant]
     Active Substance: PREDNISOLONE
     Indication: Prophylaxis
     Dosage: 2 MG/KG, QD
     Route: 048
     Dates: start: 20190828, end: 20190830
  3. PREDNISOLONE [Concomitant]
     Active Substance: PREDNISOLONE
     Dosage: 9.9 MG
     Route: 065
     Dates: start: 20190828, end: 20190830
  4. PREDNISOLONE [Concomitant]
     Active Substance: PREDNISOLONE
     Dosage: 1 MG/KG, QD
     Route: 048
     Dates: start: 20190831, end: 20190927
  5. PREDNISOLONE [Concomitant]
     Active Substance: PREDNISOLONE
     Dosage: 4.8 MG, QD
     Route: 048
     Dates: start: 20190831, end: 20190927
  6. PREDNISOLONE [Concomitant]
     Active Substance: PREDNISOLONE
     Dosage: 0.5 MG/KG, QD
     Route: 048
     Dates: start: 20190928, end: 20191011
  7. PREDNISOLONE [Concomitant]
     Active Substance: PREDNISOLONE
     Dosage: 2.7 MG
     Route: 065
     Dates: start: 20190928, end: 20191012
  8. PREDNISOLONE [Concomitant]
     Active Substance: PREDNISOLONE
     Dosage: 0.25 MG/KG, QD
     Route: 048
     Dates: start: 20191012, end: 20191025
  9. RANITIDINE [Concomitant]
     Active Substance: RANITIDINE
     Indication: Product used for unknown indication
     Dosage: 15 MG, BID
     Route: 048
     Dates: start: 20190828, end: 20191025
  10. TORADOL [Concomitant]
     Active Substance: KETOROLAC TROMETHAMINE
     Indication: Product used for unknown indication
     Dosage: 30 MG (VIAL)
     Route: 065
     Dates: start: 20210729
  11. TORADOL [Concomitant]
     Active Substance: KETOROLAC TROMETHAMINE
     Dosage: 30 MG (VIAL) (5.4 MG. O.18 ML)
     Route: 065
     Dates: start: 20210729
  12. ACETAMINOPHEN [Concomitant]
     Active Substance: ACETAMINOPHEN
     Indication: Product used for unknown indication
     Dosage: 160 MG/ 5 ML UD ORAL SYRINGE, QID
     Route: 048
     Dates: start: 20210729
  13. IBUPROFEN [Concomitant]
     Active Substance: IBUPROFEN
     Indication: Product used for unknown indication
     Dosage: 100 MG/ ML UD CUP
     Route: 065
     Dates: start: 20210729
  14. IBUPROFEN [Concomitant]
     Active Substance: IBUPROFEN
     Dosage: 100 MG/ ML UD CUP, BID
     Route: 065
     Dates: start: 20210728
  15. ONDANSETRON [Concomitant]
     Active Substance: ONDANSETRON
     Indication: Product used for unknown indication
     Dosage: 2 MG/ML VL 2 ML, BID
     Route: 065
     Dates: start: 20210729
  16. CEFTRIAXONE [Concomitant]
     Active Substance: CEFTRIAXONE
     Indication: Product used for unknown indication
     Dosage: UNK
     Route: 042
     Dates: start: 20210728
  17. TYLENOL [Concomitant]
     Active Substance: ACETAMINOPHEN
     Indication: Product used for unknown indication
     Dosage: 160 MG/ 5 ML UD CUP
     Route: 065
     Dates: start: 20210728
  18. TYLENOL [Concomitant]
     Active Substance: ACETAMINOPHEN
     Dosage: 160 MG/ 5 ML UD CUP
     Route: 048
     Dates: start: 20210728
  19. SODIUM CHLORIDE [Concomitant]
     Active Substance: SODIUM CHLORIDE
     Indication: Product used for unknown indication
     Dosage: INTRAVENOUS SOLUTION (MORMAL SALINE BOLUS) (IVF SODIUM CHLORIDE 0.9%, 500 ML)
     Route: 042
     Dates: start: 20210728
  20. MOTRIN [Concomitant]
     Active Substance: IBUPROFEN
     Indication: Product used for unknown indication
     Dosage: 100 MG/ 5 ML UD CUP
     Route: 065
     Dates: start: 20210728
  21. MOTRIN [Concomitant]
     Active Substance: IBUPROFEN
     Dosage: 100 MG/ 5 ML UD CUP
     Route: 048
     Dates: start: 20210728
  22. CLARITIN [Concomitant]
     Active Substance: LORATADINE
     Indication: Product used for unknown indication
     Dosage: 5 MG/5 ML, DAILY PRN
     Route: 048
  23. MIRALAX [Concomitant]
     Active Substance: POLYETHYLENE GLYCOL 3350
     Indication: Product used for unknown indication
     Dosage: POWDER FOR RECONSTITUTION 1/4 TO 1 CAP FULLS IN WATER OR JUICE 1-2 TIMES DAILY AS NEEDED FOR CONSTIP
     Route: 048

REACTIONS (53)
  - C-reactive protein increased [Unknown]
  - Fluid intake reduced [Unknown]
  - Inflammatory marker increased [Unknown]
  - Sepsis [Unknown]
  - Meningitis [Unknown]
  - Viral infection [Unknown]
  - Otitis media acute [Unknown]
  - Ear infection [Unknown]
  - Lethargy [Recovered/Resolved]
  - Pyrexia [Recovered/Resolved]
  - Dehydration [Recovered/Resolved]
  - Pharyngitis [Recovered/Resolved]
  - Adenovirus infection [Recovered/Resolved]
  - Hyperkalaemia [Recovered/Resolved]
  - Hyperkalaemia [Recovered/Resolved]
  - Hyperkalaemia [Recovered/Resolved]
  - Aspartate aminotransferase increased [Recovered/Resolved]
  - Alanine aminotransferase increased [Recovered/Resolved]
  - Alanine aminotransferase increased [Recovered/Resolved]
  - Malaise [Unknown]
  - Cough [Not Recovered/Not Resolved]
  - Nasal congestion [Unknown]
  - Rhinorrhoea [Unknown]
  - Headache [Unknown]
  - Decreased appetite [Unknown]
  - Irritability [Unknown]
  - Decreased activity [Unknown]
  - Abnormal behaviour [Unknown]
  - Skin discolouration [Recovered/Resolved]
  - Crying [Unknown]
  - Hypophagia [Unknown]
  - Haemoglobin decreased [Unknown]
  - Mean platelet volume [Unknown]
  - Neutrophil count increased [Unknown]
  - Rash [Unknown]
  - Feeling hot [Unknown]
  - Lymphocyte count decreased [Unknown]
  - Red blood cell sedimentation rate increased [Unknown]
  - Blood albumin decreased [Unknown]
  - Hypoalbuminaemia [Recovered/Resolved]
  - Carbon dioxide decreased [Recovered/Resolved]
  - Blood glucose increased [Recovered/Resolved]
  - Blood chloride increased [Recovered/Resolved]
  - Blood urea decreased [Not Recovered/Not Resolved]
  - Viral rash [Recovered/Resolved]
  - Hyperglycaemia [Recovered/Resolved]
  - Hyperglycaemia [Recovered/Resolved]
  - Rhinovirus infection [Recovered/Resolved]
  - Otitis media acute [Recovered/Resolved]
  - COVID-19 [Recovered/Resolved]
  - Vomiting [Recovered/Resolved]
  - Hand-foot-and-mouth disease [Recovered/Resolved]
  - Otitis media [Recovered/Resolved]

NARRATIVE: CASE EVENT DATE: 20190905
